FAERS Safety Report 4775596-0 (Version None)
Quarter: 2005Q3

REPORT INFORMATION
  Report Type: 
  Country: None (occurrence: None)
  Receive Date: 20050914
  Receipt Date: 20050315
  Transmission Date: 20060218
  Serious: Yes (Death, Hospitalization)
  Sender: FDA-Public Use
  Company Number: 163-20785-05030386

PATIENT
  Age: 82 Year
  Sex: Male

DRUGS (3)
  1. THALOMID [Suspect]
     Indication: MULTIPLE MYELOMA
     Dosage: 200 MG, DAILY, ORAL
     Route: 048
     Dates: start: 20040517, end: 20041116
  2. THALOMID [Suspect]
     Indication: MYELODYSPLASTIC SYNDROME
     Dosage: 200 MG, DAILY, ORAL
     Route: 048
     Dates: start: 20040517, end: 20041116
  3. THALOMID [Suspect]
     Indication: PLASMACYTOMA
     Dosage: 200 MG, DAILY, ORAL
     Route: 048
     Dates: start: 20040517, end: 20041116

REACTIONS (1)
  - PNEUMONIA [None]
